FAERS Safety Report 20059657 (Version 1)
Quarter: 2021Q4

REPORT INFORMATION
  Report Type: Other
  Country: None (occurrence: IN)
  Receive Date: 20211111
  Receipt Date: 20211111
  Transmission Date: 20220303
  Serious: Yes (Hospitalization)
  Sender: FDA-Public Use
  Company Number: IN-B.Braun Medical Inc.-2121766

PATIENT
  Age: 65 Year
  Sex: Male

DRUGS (2)
  1. SODIUM CHLORIDE [Suspect]
     Active Substance: SODIUM CHLORIDE
  2. 100 mg of itolizumab (Alzumab-L, Biocon Biologics) was diluted to 250 [Concomitant]

REACTIONS (1)
  - Atrioventricular block second degree [Recovered/Resolved]
